FAERS Safety Report 17820713 (Version 1)
Quarter: 2020Q2

REPORT INFORMATION
  Report Type: Spontaneous
  Country: CZ (occurrence: US)
  Receive Date: 20200525
  Receipt Date: 20200525
  Transmission Date: 20200714
  Serious: Yes (Other)
  Sender: FDA-Public Use
  Company Number: NVSC2019US047194

PATIENT

DRUGS (10)
  1. CELECOXIB. [Suspect]
     Active Substance: CELECOXIB
     Indication: SARCOMA METASTATIC
     Dosage: 400 MG/M2, QD
     Route: 048
  2. NIVOLUMAB [Suspect]
     Active Substance: NIVOLUMAB
     Indication: SARCOMA METASTATIC
     Dosage: UNK
     Route: 065
  3. PAZOPANIB [Suspect]
     Active Substance: PAZOPANIB
     Indication: ALVEOLAR RHABDOMYOSARCOMA
     Dosage: UNK
     Route: 065
     Dates: start: 201507, end: 201510
  4. 13-CIS-RETINOIC ACID [Suspect]
     Active Substance: ISOTRETINOIN
     Indication: SARCOMA METASTATIC
     Dosage: 100 MG/M2, QD
     Route: 048
  5. TEMOZOLOMIDE. [Suspect]
     Active Substance: TEMOZOLOMIDE
     Indication: SARCOMA METASTATIC
     Dosage: 30 MG/M2, QD
     Route: 048
  6. ETOPOSIDE. [Suspect]
     Active Substance: ETOPOSIDE
     Indication: SARCOMA METASTATIC
     Dosage: 25 MG/M2, QD
     Route: 048
  7. TEMSIROLIMUS. [Suspect]
     Active Substance: TEMSIROLIMUS
     Indication: SARCOMA METASTATIC
     Dosage: UNK
     Route: 065
     Dates: start: 201511, end: 201601
  8. BEVACIZUMAB. [Suspect]
     Active Substance: BEVACIZUMAB
     Indication: SARCOMA METASTATIC
     Dosage: 10 MG/KG, QD
     Route: 065
  9. FENOFIBRATE. [Suspect]
     Active Substance: FENOFIBRATE
     Indication: ALVEOLAR RHABDOMYOSARCOMA
     Dosage: 100 MG/M2, QD
     Route: 048
  10. ERGOCALCIFEROL. [Suspect]
     Active Substance: ERGOCALCIFEROL
     Indication: SARCOMA METASTATIC
     Dosage: 1500 U/M2 , QD
     Route: 065

REACTIONS (3)
  - Malignant neoplasm progression [Unknown]
  - Product use in unapproved indication [Unknown]
  - Alveolar rhabdomyosarcoma [Unknown]
